FAERS Safety Report 17944560 (Version 1)
Quarter: 2020Q2

REPORT INFORMATION
  Report Type: Spontaneous
  Country: US (occurrence: US)
  Receive Date: 20200625
  Receipt Date: 20200625
  Transmission Date: 20200714
  Serious: Yes (Death, Other)
  Sender: FDA-Public Use
  Company Number: US-ENDO PHARMACEUTICALS INC-2020-004395

PATIENT
  Age: 49 Year

DRUGS (1)
  1. VENLAFAXINE HYDROCHLORIDE. [Suspect]
     Active Substance: VENLAFAXINE HYDROCHLORIDE
     Indication: PRODUCT USED FOR UNKNOWN INDICATION
     Dosage: UNK UNKNOWN, UNKNOWN
     Route: 048

REACTIONS (13)
  - Death [Fatal]
  - Tachycardia [Unknown]
  - Hypotension [Unknown]
  - Cardiac arrest [Unknown]
  - Confusional state [Unknown]
  - Conduction disorder [Unknown]
  - Hyperglycaemia [Unknown]
  - Acidosis [Unknown]
  - Lethargy [Unknown]
  - Somnolence [Unknown]
  - Blood creatinine increased [Unknown]
  - Pyrexia [Unknown]
  - Hyperthermia [Unknown]

NARRATIVE: CASE EVENT DATE: 201603
